FAERS Safety Report 13524902 (Version 1)
Quarter: 2017Q2

REPORT INFORMATION
  Report Type: Spontaneous
  Country: US (occurrence: US)
  Receive Date: 20170508
  Receipt Date: 20170508
  Transmission Date: 20170830
  Serious: No
  Sender: FDA-Public Use
  Company Number: US-ROCHE-1125962

PATIENT
  Sex: Female

DRUGS (5)
  1. TAXOTERE [Concomitant]
     Active Substance: DOCETAXEL
     Route: 065
     Dates: end: 20040603
  2. TAXOTERE [Concomitant]
     Active Substance: DOCETAXEL
     Route: 065
     Dates: start: 20050727
  3. CYCLOPHOSPHAMIDE. [Concomitant]
     Active Substance: CYCLOPHOSPHAMIDE
  4. AVASTIN [Suspect]
     Active Substance: BEVACIZUMAB
     Indication: BREAST CANCER FEMALE
     Route: 065
     Dates: start: 20050601
  5. NAVELBINE [Concomitant]
     Active Substance: VINORELBINE TARTRATE

REACTIONS (2)
  - Therapy non-responder [Unknown]
  - Disease progression [Unknown]
